FAERS Safety Report 20182773 (Version 1)
Quarter: 2021Q4

REPORT INFORMATION
  Report Type: Spontaneous
  Country: US (occurrence: None)
  Receive Date: 20211214
  Receipt Date: 20211214
  Transmission Date: 20220303
  Serious: Yes (Hospitalization)
  Sender: FDA-Public Use
  Company Number: None

PATIENT
  Age: 28 Year
  Sex: Female

DRUGS (1)
  1. MAKENA [Suspect]
     Active Substance: HYDROXYPROGESTERONE CAPROATE
     Indication: Premature labour
     Dates: start: 20211119

REACTIONS (3)
  - Tachycardia [None]
  - Dyspnoea [None]
  - Intentional dose omission [None]

NARRATIVE: CASE EVENT DATE: 20211206
